FAERS Safety Report 8989768 (Version 1)
Quarter: 2012Q4

REPORT INFORMATION
  Report Type: 
  Country: BE (occurrence: BE)
  Receive Date: 20121228
  Receipt Date: 20121228
  Transmission Date: 20130627
  Serious: Yes (Other)
  Sender: FDA-Public Use
  Company Number: BE-TEVA-377453ISR

PATIENT
  Age: 45 Year
  Sex: Female

DRUGS (1)
  1. LEVONORGESTREL 1.5 MG TABLET [Suspect]
     Indication: POST COITAL CONTRACEPTION
     Route: 048

REACTIONS (3)
  - Diarrhoea haemorrhagic [Recovered/Resolved]
  - Nausea [Recovered/Resolved]
  - Vomiting [Recovered/Resolved]
